FAERS Safety Report 23557913 (Version 2)
Quarter: 2024Q1

REPORT INFORMATION
  Report Type: Report from Study
  Country: US (occurrence: US)
  Receive Date: 20240223
  Receipt Date: 20240301
  Transmission Date: 20240410
  Serious: Yes (Hospitalization)
  Sender: FDA-Public Use
  Company Number: US-002147023-NVSC2024US036670

PATIENT
  Age: 68 Year
  Sex: Male

DRUGS (1)
  1. ENTRESTO [Suspect]
     Active Substance: SACUBITRIL\VALSARTAN
     Indication: Product used for unknown indication
     Dosage: 1 DOSAGE FORM, BID
     Route: 048
     Dates: start: 2017

REACTIONS (5)
  - Hypertension [Unknown]
  - Dyspnoea [Unknown]
  - Fluid retention [Unknown]
  - Hypotension [Unknown]
  - Off label use [Unknown]

NARRATIVE: CASE EVENT DATE: 20240201
